FAERS Safety Report 11165925 (Version 8)
Quarter: 2016Q1

REPORT INFORMATION
  Report Type: Report from Study
  Country: GB (occurrence: GB)
  Receive Date: 20150604
  Receipt Date: 20160202
  Transmission Date: 20160525
  Serious: Yes (Hospitalization)
  Sender: FDA-Public Use
  Company Number: GB-EISAI MEDICAL RESEARCH-EC-2015-007352

PATIENT
  Age: 43 Year
  Sex: Male
  Weight: 65.6 kg

DRUGS (9)
  1. FYCOMPA [Suspect]
     Active Substance: PERAMPANEL
     Route: 048
     Dates: start: 20150325, end: 20150411
  2. CLOBAZAM [Concomitant]
     Active Substance: CLOBAZAM
  3. LACOSAMIDE [Concomitant]
     Active Substance: LACOSAMIDE
  4. FYCOMPA [Suspect]
     Active Substance: PERAMPANEL
     Route: 048
     Dates: start: 20150413, end: 20150427
  5. FYCOMPA [Suspect]
     Active Substance: PERAMPANEL
     Indication: PARTIAL SEIZURES
     Route: 048
     Dates: start: 20141112
  6. FYCOMPA [Suspect]
     Active Substance: PERAMPANEL
     Route: 048
     Dates: start: 20150108, end: 20150324
  7. LAMOTRIGINE. [Concomitant]
     Active Substance: LAMOTRIGINE
  8. HUMULIN S [Concomitant]
  9. LANTUS [Concomitant]
     Active Substance: INSULIN GLARGINE

REACTIONS (2)
  - Ataxia [Recovered/Resolved]
  - Confusional state [Recovered/Resolved]

NARRATIVE: CASE EVENT DATE: 20150411
